FAERS Safety Report 19853093 (Version 1)
Quarter: 2021Q3

REPORT INFORMATION
  Report Type: Spontaneous
  Country: US (occurrence: US)
  Receive Date: 20210919
  Receipt Date: 20210919
  Transmission Date: 20211014
  Serious: No
  Sender: FDA-Public Use
  Company Number: US-SA-2021SA304466

PATIENT
  Age: 54 Year
  Sex: Female

DRUGS (3)
  1. AMOXICILLIN (SALT NOT SPECIFIED) [Suspect]
     Active Substance: AMOXICILLIN
  2. DUPIXENT [Suspect]
     Active Substance: DUPILUMAB
     Indication: DERMATITIS ATOPIC
     Dosage: 200 MG
     Dates: start: 202106
  3. DOXYCYCLINE. [Suspect]
     Active Substance: DOXYCYCLINE

REACTIONS (2)
  - Product use issue [Unknown]
  - Bronchitis [Unknown]

NARRATIVE: CASE EVENT DATE: 20210801
